FAERS Safety Report 7309417-9 (Version None)
Quarter: 2011Q1

REPORT INFORMATION
  Report Type: 
  Country: None (occurrence: None)
  Receive Date: 20110223
  Receipt Date: 20110211
  Transmission Date: 20110831
  Serious: Yes (Hospitalization)
  Sender: FDA-Public Use
  Company Number: FR-ELI_LILLY_AND_COMPANY-FR201102002955

PATIENT
  Age: 51 Year
  Sex: Male

DRUGS (6)
  1. LOVENOX [Concomitant]
  2. ACUPAN [Concomitant]
  3. CORTICOSTEROIDS [Concomitant]
  4. TOPALGIC [Concomitant]
  5. FORTEO [Suspect]
     Route: 058
  6. PARACETAMOL [Concomitant]

REACTIONS (4)
  - MYALGIA [None]
  - WHITE BLOOD CELL COUNT INCREASED [None]
  - OSTEOLYSIS [None]
  - DEVICE DISLOCATION [None]
